FAERS Safety Report 16723838 (Version 2)
Quarter: 2019Q4

REPORT INFORMATION
  Report Type: Report from Study
  Country: US (occurrence: US)
  Receive Date: 20190821
  Receipt Date: 20191202
  Transmission Date: 20200122
  Serious: Yes (Other)
  Sender: FDA-Public Use
  Company Number: PHEH2019US034166

PATIENT
  Age: 45 Year
  Sex: Male

DRUGS (2)
  1. COSENTYX [Suspect]
     Active Substance: SECUKINUMAB
     Indication: PSORIATIC ARTHROPATHY
     Dosage: 300 MG, QMO
     Route: 058
     Dates: start: 201907
  2. COSENTYX [Suspect]
     Active Substance: SECUKINUMAB
     Indication: PSORIASIS
     Dosage: 300 MG, QW
     Route: 058
     Dates: start: 20190807

REACTIONS (6)
  - Joint swelling [Unknown]
  - Arthralgia [Unknown]
  - Psoriatic arthropathy [Not Recovered/Not Resolved]
  - Bone pain [Unknown]
  - Ligament rupture [Not Recovered/Not Resolved]
  - Stress fracture [Not Recovered/Not Resolved]

NARRATIVE: CASE EVENT DATE: 20190807
